FAERS Safety Report 8249757-2 (Version None)
Quarter: 2012Q2

REPORT INFORMATION
  Report Type: 
  Country: None (occurrence: None)
  Receive Date: 20120402
  Receipt Date: 20120320
  Transmission Date: 20120825
  Serious: Yes (Other)
  Sender: FDA-Public Use
  Company Number: PHHY2011US36490

PATIENT
  Sex: Male
  Weight: 104.31 kg

DRUGS (9)
  1. ZESTORETIC [Concomitant]
     Indication: HYPERTENSION
     Dosage: 1 DF (25 MG HYDROCHLOROTHIAZUDE/ 20 MG LISINOPRIL
     Route: 048
  2. ZOCOR [Concomitant]
     Indication: BLOOD CHOLESTEROL INCREASED
     Dosage: 80 MG, UNK
     Route: 048
  3. FISH OIL [Concomitant]
  4. VITAMIN B-12 [Concomitant]
     Dosage: 1 DF, DAILY
  5. OPANA [Concomitant]
  6. PERCOCET [Concomitant]
  7. GLEEVEC [Suspect]
     Indication: CHRONIC MYELOID LEUKAEMIA
     Dosage: 400 MG, EVERY DAY
     Route: 048
     Dates: start: 20090101
  8. TOPROL-XL [Concomitant]
     Indication: HYPERTENSION
     Dosage: 50 MG, UNK
  9. ASPIRIN [Concomitant]
     Dosage: 325 MG, UNK
     Route: 048

REACTIONS (5)
  - RALES [None]
  - NAUSEA [None]
  - DYSPHONIA [None]
  - THROAT TIGHTNESS [None]
  - LARYNGEAL MASS [None]
